FAERS Safety Report 15553035 (Version 2)
Quarter: 2020Q1

REPORT INFORMATION
  Report Type: Spontaneous
  Country: US (occurrence: US)
  Receive Date: 20181026
  Receipt Date: 20200129
  Transmission Date: 20200409
  Serious: Yes (Hospitalization)
  Sender: FDA-Public Use
  Company Number: US-VIFOR (INTERNATIONAL) INC.-VIT-2018-10387

PATIENT
  Age: 66 Year
  Sex: Male

DRUGS (13)
  1. PHOSLO [Concomitant]
     Active Substance: CALCIUM ACETATE
  2. DIALYVITE [Concomitant]
     Active Substance: ASCORBIC ACID\BIOTIN\CALCIUM PANTOTHENATE\COBALAMIN\FOLIC ACID\NIACINAMIDE\PYRIDOXINE HYDROCHLORIDE\RIBOFLAVIN\THIAMINE MONONITRATE
  3. AMLODIPINE BESYLATE. [Concomitant]
     Active Substance: AMLODIPINE BESYLATE
  4. TRAMADOL HCL [Concomitant]
     Active Substance: TRAMADOL HYDROCHLORIDE
  5. GABAPENTIN. [Concomitant]
     Active Substance: GABAPENTIN
  6. REQUIP [Concomitant]
     Active Substance: ROPINIROLE HYDROCHLORIDE
  7. CYCLOBENZAPRINE HCL [Concomitant]
     Active Substance: CYCLOBENZAPRINE HYDROCHLORIDE
  8. ASPIRIN EC [Concomitant]
     Active Substance: ASPIRIN
  9. VITAMIN D [Concomitant]
     Active Substance: VITAMIN D NOS
  10. VELTASSA [Suspect]
     Active Substance: PATIROMER
     Indication: HYPERKALAEMIA
     Route: 048
  11. CARVEDILOL. [Concomitant]
     Active Substance: CARVEDILOL
  12. HYDRALAZINE HCL [Concomitant]
     Active Substance: HYDRALAZINE HYDROCHLORIDE
  13. LIPITOR [Concomitant]
     Active Substance: ATORVASTATIN CALCIUM

REACTIONS (2)
  - Pneumonia [Unknown]
  - Hospitalisation [Unknown]

NARRATIVE: CASE EVENT DATE: 202001
